FAERS Safety Report 23647030 (Version 1)
Quarter: 2024Q1

REPORT INFORMATION
  Report Type: Report from Study
  Country: US (occurrence: US)
  Receive Date: 20240319
  Receipt Date: 20240319
  Transmission Date: 20240410
  Serious: Yes (Other)
  Sender: FDA-Public Use
  Company Number: US-MYLANLABS-2023M1091495

PATIENT
  Sex: Male
  Weight: 71.11 kg

DRUGS (2)
  1. GLATIRAMER ACETATE [Suspect]
     Active Substance: GLATIRAMER ACETATE
     Indication: Multiple sclerosis
     Dosage: 40 MILLIGRAM, 3XW
     Route: 058
     Dates: start: 202203
  2. GLATIRAMER ACETATE [Suspect]
     Active Substance: GLATIRAMER ACETATE
     Indication: Relapsing-remitting multiple sclerosis
     Dosage: 40 MILLIGRAM, 3XW
     Route: 058

REACTIONS (15)
  - Loss of consciousness [Unknown]
  - Dizziness [Unknown]
  - Injection site haemorrhage [Unknown]
  - Foaming at mouth [Recovered/Resolved]
  - Pyrexia [Unknown]
  - Injection site erythema [Unknown]
  - Injection site vesicles [Not Recovered/Not Resolved]
  - Injection site warmth [Unknown]
  - Injection site swelling [Not Recovered/Not Resolved]
  - Flushing [Unknown]
  - Chills [Recovering/Resolving]
  - Eructation [Recovered/Resolved]
  - Influenza like illness [Unknown]
  - Wrong technique in product usage process [Unknown]
  - Dyspnoea [Unknown]
